FAERS Safety Report 14353446 (Version 1)
Quarter: 2018Q1

REPORT INFORMATION
  Report Type: Spontaneous
  Country: GB (occurrence: GB)
  Receive Date: 20180105
  Receipt Date: 20180105
  Transmission Date: 20180509
  Serious: Yes (Hospitalization)
  Sender: FDA-Public Use
  Company Number: GB-ALVOGEN-2018-ALVOGEN-094701

PATIENT
  Sex: Female

DRUGS (8)
  1. AMITRIPTYLINE [Concomitant]
     Active Substance: AMITRIPTYLINE
  2. GLICLAZIDE [Concomitant]
     Active Substance: GLICLAZIDE
  3. LISINOPRIL. [Concomitant]
     Active Substance: LISINOPRIL
  4. ALLOPURINOL. [Concomitant]
     Active Substance: ALLOPURINOL
  5. ATENOLOL. [Suspect]
     Active Substance: ATENOLOL
     Indication: HYPERTENSION
     Route: 048
     Dates: end: 20171206
  6. CLOPIDOGREL [Concomitant]
     Active Substance: CLOPIDOGREL BISULFATE
  7. ATORVASTATIN [Concomitant]
     Active Substance: ATORVASTATIN
  8. METFORMIN [Concomitant]
     Active Substance: METFORMIN HYDROCHLORIDE

REACTIONS (2)
  - Bradycardia [Recovered/Resolved]
  - Fall [Recovered/Resolved]
